FAERS Safety Report 17965789 (Version 1)
Quarter: 2020Q3

REPORT INFORMATION
  Report Type: Spontaneous
  Country: US (occurrence: US)
  Receive Date: 20200701
  Receipt Date: 20200701
  Transmission Date: 20201103
  Serious: Yes (Hospitalization)
  Sender: FDA-Public Use
  Company Number: US-ROCHE-2626989

PATIENT
  Sex: Female

DRUGS (14)
  1. AMLODIPINE [Concomitant]
     Active Substance: AMLODIPINE BESYLATE
  2. OCREVUS [Suspect]
     Active Substance: OCRELIZUMAB
     Indication: PRODUCT USED FOR UNKNOWN INDICATION
     Route: 065
  3. FERROSULFAT [Concomitant]
  4. AUBAGIO [Suspect]
     Active Substance: TERIFLUNOMIDE
     Indication: PRODUCT USED FOR UNKNOWN INDICATION
     Route: 065
  5. DIAZEPAM. [Concomitant]
     Active Substance: DIAZEPAM
  6. LOSART [Concomitant]
  7. AMPYRA [Suspect]
     Active Substance: DALFAMPRIDINE
     Indication: MULTIPLE SCLEROSIS
     Dosage: FIRST STOP WAS IN MAR/2019, BUT SHE WAS TAKING THE DRUG AGAIN.
     Route: 048
     Dates: start: 20180913
  8. OMEPRAZOLE. [Concomitant]
     Active Substance: OMEPRAZOLE
  9. DOCUSATE SODIUM. [Concomitant]
     Active Substance: DOCUSATE SODIUM
  10. FEROSUL [Concomitant]
     Active Substance: FERROUS SULFATE
  11. ASPIRIN. [Concomitant]
     Active Substance: ASPIRIN
  12. METOPROLOL. [Concomitant]
     Active Substance: METOPROLOL
  13. BACLOFEN. [Concomitant]
     Active Substance: BACLOFEN
  14. MELATONIN [Concomitant]
     Active Substance: MELATONIN

REACTIONS (9)
  - Hypokinesia [Unknown]
  - Fall [Unknown]
  - Contusion [Unknown]
  - Pain in extremity [Unknown]
  - Asthenia [Unknown]
  - Balance disorder [Unknown]
  - Multiple sclerosis [Unknown]
  - Immunodeficiency [Unknown]
  - Dizziness [Unknown]
